FAERS Safety Report 13293177 (Version 5)
Quarter: 2017Q3

REPORT INFORMATION
  Report Type: Spontaneous
  Country: US (occurrence: US)
  Receive Date: 20170303
  Receipt Date: 20170817
  Transmission Date: 20171127
  Serious: Yes (Hospitalization, Other)
  Sender: FDA-Public Use
  Company Number: US-JNJFOC-20170112653

PATIENT
  Age: 85 Year
  Sex: Female
  Weight: 108.3 kg

DRUGS (9)
  1. ADEMPAS [Suspect]
     Active Substance: RIOCIGUAT
     Indication: PULMONARY ARTERIAL HYPERTENSION
     Dosage: DOSAGE: UNKNOWN
     Route: 048
     Dates: start: 20151029
  2. DILTIAZEM. [Concomitant]
     Active Substance: DILTIAZEM
     Dosage: DOSE: UNKNOWN
     Route: 065
  3. MIRABEGRON [Concomitant]
     Active Substance: MIRABEGRON
     Route: 065
  4. APIXABAN [Concomitant]
     Active Substance: APIXABAN
     Route: 065
  5. XARELTO [Suspect]
     Active Substance: RIVAROXABAN
     Indication: PRODUCT USED FOR UNKNOWN INDICATION
     Dosage: DOSAGE: UNKNOWN
     Route: 048
  6. ADEMPAS [Suspect]
     Active Substance: RIOCIGUAT
     Indication: PULMONARY ARTERIAL HYPERTENSION
     Route: 048
     Dates: end: 20170613
  7. ADEMPAS [Suspect]
     Active Substance: RIOCIGUAT
     Indication: PULMONARY ARTERIAL HYPERTENSION
     Route: 048
  8. ADEMPAS [Suspect]
     Active Substance: RIOCIGUAT
     Indication: PULMONARY ARTERIAL HYPERTENSION
     Route: 048
  9. ADEMPAS [Suspect]
     Active Substance: RIOCIGUAT
     Indication: PULMONARY ARTERIAL HYPERTENSION
     Route: 048

REACTIONS (22)
  - Nocturnal dyspnoea [Unknown]
  - Weight decreased [Unknown]
  - Memory impairment [Unknown]
  - Oxygen saturation decreased [Unknown]
  - Rash pruritic [Recovering/Resolving]
  - Chest discomfort [Unknown]
  - Oedema [Unknown]
  - Back pain [Unknown]
  - Musculoskeletal pain [Unknown]
  - Dyspnoea exertional [Unknown]
  - Blood urine present [Unknown]
  - Blood pressure systolic decreased [Unknown]
  - Decreased appetite [Unknown]
  - Weight increased [Unknown]
  - Rash [Unknown]
  - Hospitalisation [Unknown]
  - Headache [Unknown]
  - Dysuria [Unknown]
  - Adverse drug reaction [Unknown]
  - Somnolence [Unknown]
  - Chest pain [Unknown]
  - Depression [Unknown]

NARRATIVE: CASE EVENT DATE: 20170110
